FAERS Safety Report 20829082 (Version 2)
Quarter: 2022Q3

REPORT INFORMATION
  Report Type: Spontaneous
  Country: US (occurrence: US)
  Receive Date: 20220513
  Receipt Date: 20220923
  Transmission Date: 20221027
  Serious: No
  Sender: FDA-Public Use
  Company Number: US-SA-SAC20220511000413

PATIENT
  Age: 51 Year
  Sex: Female

DRUGS (3)
  1. AUBAGIO [Suspect]
     Active Substance: TERIFLUNOMIDE
     Indication: Multiple sclerosis
     Dosage: 14 MG, QD
     Route: 048
     Dates: start: 20220414
  2. PROMETHAZINE - DEXTROMETHORPHANE [Concomitant]
     Dosage: UNK UNK, QD
  3. NORTRIPTYLINE [Concomitant]
     Active Substance: NORTRIPTYLINE
     Dosage: UNK, QD

REACTIONS (5)
  - Mental disorder [Not Recovered/Not Resolved]
  - General physical condition abnormal [Not Recovered/Not Resolved]
  - Nausea [Not Recovered/Not Resolved]
  - Headache [Not Recovered/Not Resolved]
  - Drug ineffective [Unknown]

NARRATIVE: CASE EVENT DATE: 20220101
